FAERS Safety Report 25052405 (Version 3)
Quarter: 2025Q3

REPORT INFORMATION
  Report Type: Report from Study
  Country: US (occurrence: US)
  Receive Date: 20250307
  Receipt Date: 20250806
  Transmission Date: 20251020
  Serious: Yes (Hospitalization, Other)
  Sender: SUNOVION
  Company Number: US-SMPA-2025SPA001625AA

PATIENT
  Age: 63 Year
  Sex: Male

DRUGS (2)
  1. ORGOVYX [Suspect]
     Active Substance: RELUGOLIX
     Indication: Prostate cancer
     Dosage: 120 MG, QD
     Route: 048
     Dates: start: 20250213
  2. NUBEQA [Concomitant]
     Active Substance: DAROLUTAMIDE

REACTIONS (5)
  - Urinary retention [Unknown]
  - Hot flush [Unknown]
  - Asthenia [Unknown]
  - Insomnia [Unknown]
  - Incorrect dose administered [Unknown]
